FAERS Safety Report 17735270 (Version 3)
Quarter: 2020Q3

REPORT INFORMATION
  Report Type: Report from Study
  Country: US (occurrence: US)
  Receive Date: 20200501
  Receipt Date: 20200807
  Transmission Date: 20201102
  Serious: Yes (Other)
  Sender: FDA-Public Use
  Company Number: NVSC2020US116354

PATIENT
  Age: 42 Year
  Sex: Female

DRUGS (2)
  1. COSENTYX [Suspect]
     Active Substance: SECUKINUMAB
  2. COSENTYX [Suspect]
     Active Substance: SECUKINUMAB
     Indication: PSORIASIS
     Dosage: UNK
     Route: 065

REACTIONS (6)
  - Pain [Unknown]
  - Hypersomnia [Unknown]
  - Pyrexia [Unknown]
  - Feeling abnormal [Unknown]
  - Coronavirus test positive [Unknown]
  - Needle issue [Unknown]

NARRATIVE: CASE EVENT DATE: 202004
